FAERS Safety Report 6589227-0 (Version None)
Quarter: 2010Q1

REPORT INFORMATION
  Report Type: 
  Country: None (occurrence: None)
  Receive Date: 20100218
  Receipt Date: 20100210
  Transmission Date: 20100710
  Serious: Yes (Hospitalization, Other)
  Sender: FDA-Public Use
  Company Number: IN-BAXTER-2010BH002989

PATIENT
  Age: 45 Year
  Sex: Male

DRUGS (2)
  1. DEXTROSE 5% [Suspect]
     Indication: PYREXIA
     Route: 042
     Dates: start: 20100209, end: 20100209
  2. DEXTROSE 5% [Suspect]
     Indication: DEHYDRATION
     Route: 042
     Dates: start: 20100209, end: 20100209

REACTIONS (3)
  - BRONCHOSPASM [None]
  - CHILLS [None]
  - SENSORY DISTURBANCE [None]
